FAERS Safety Report 7306806-3 (Version None)
Quarter: 2011Q1

REPORT INFORMATION
  Report Type: 
  Country: None (occurrence: None)
  Receive Date: 20110223
  Receipt Date: 20110211
  Transmission Date: 20110831
  Serious: Yes (Life-Threatening, Hospitalization)
  Sender: FDA-Public Use
  Company Number: US-BAYER-2011-014126

PATIENT
  Sex: Female

DRUGS (2)
  1. LACTIC ACID [Concomitant]
     Dosage: 3 DF, UNK
     Dates: start: 20110207
  2. AVELOX [Suspect]
     Dosage: 400 MG, QD
     Route: 048
     Dates: start: 20110206, end: 20110207

REACTIONS (1)
  - THROAT TIGHTNESS [None]
